FAERS Safety Report 25955286 (Version 1)
Quarter: 2025Q4

REPORT INFORMATION
  Report Type: Report from Study
  Country: US (occurrence: US)
  Receive Date: 20251024
  Receipt Date: 20251024
  Transmission Date: 20260117
  Serious: Yes (Hospitalization, Other)
  Sender: IPSEN BIOPHARMACEUTICALS, INC.
  Company Number: US-IPSEN Group, Research and Development-2022-18812

PATIENT
  Age: 63 Year
  Sex: Male
  Weight: 76.6 kg

DRUGS (21)
  1. ONIVYDE [Suspect]
     Active Substance: IRINOTECAN HYDROCHLORIDE
     Indication: Colon cancer
     Dosage: DOSE REDUCED BY 50% ON 03-NOV-2020 AND WAS TAKEN AT THAT DOSE LEVEL UNTIL 21-MAY-2021.
     Dates: start: 20200928, end: 20201013
  2. ONIVYDE [Suspect]
     Active Substance: IRINOTECAN HYDROCHLORIDE
     Dosage: DOSE REDUCED BY 50% ON 03-NOV-2020 AND WAS TAKEN AT THAT DOSE LEVEL UNTIL 21-MAY-2021.
     Dates: start: 20201103, end: 20210511
  3. FLUOROURACIL [Suspect]
     Active Substance: FLUOROURACIL
     Indication: Colon cancer
     Dates: start: 20200928, end: 20201013
  4. FLUOROURACIL [Suspect]
     Active Substance: FLUOROURACIL
     Dates: start: 20201016, end: 20201021
  5. FLUOROURACIL [Suspect]
     Active Substance: FLUOROURACIL
     Dates: start: 20201102, end: 20210521
  6. RUCAPARIB [Suspect]
     Active Substance: RUCAPARIB
     Indication: Colon cancer
     Dates: start: 20200902
  7. RUCAPARIB [Suspect]
     Active Substance: RUCAPARIB
     Dates: start: 20201002
  8. RUCAPARIB [Suspect]
     Active Substance: RUCAPARIB
     Dates: start: 20201016, end: 20201021
  9. IMODIUM A-D [Concomitant]
     Active Substance: LOPERAMIDE HYDROCHLORIDE
     Indication: Diarrhoea
     Dosage: TAKE 2 CAPSULES (4 MG) AT THE ONSET OF DIARRHEA, THEN 1 CAPSULE (2 MG) EVERY 2 HOURS AS NEEDED MAX OF 8 CAPSULES (16 MG) DAILY
     Dates: start: 20200928, end: 20210726
  10. ATIVAN [Concomitant]
     Active Substance: LORAZEPAM
     Indication: Nausea
     Dosage: TAKE 1 TABLET (0.5 MG TOTAL) BY MOUTH EVERY 4 (FOUR) HOURS AS NEEDED
     Route: 048
     Dates: start: 20201009, end: 20210726
  11. ZOFRAN [Concomitant]
     Active Substance: ONDANSETRON HYDROCHLORIDE
     Indication: Nausea
     Route: 048
     Dates: start: 20200928, end: 20210726
  12. ZOFRAN [Concomitant]
     Active Substance: ONDANSETRON HYDROCHLORIDE
     Indication: Vomiting
  13. PERCOCET [Concomitant]
     Active Substance: ACETAMINOPHEN\OXYCODONE HYDROCHLORIDE
     Indication: Pain
     Dosage: 5-325 MG PER TABLET TAKE 1-2 TABLETS BY MOUTH EVERY 6 (SIX) HOURS AS NEEDED FOR MODERATE PAIN OR SCORE 4-6 OF 10
     Route: 048
     Dates: start: 20200928, end: 20210618
  14. PROTONIX [Concomitant]
     Active Substance: PANTOPRAZOLE SODIUM
     Dosage: TAKE 40 MG BY MOUTH EVERY MORNING BEFORE BREAKFAST.
     Route: 048
     Dates: start: 20190121, end: 20210830
  15. COMPAZINE [Concomitant]
     Active Substance: PROCHLORPERAZINE MALEATE
     Indication: Nausea
     Dosage: TAKE 1 TABLET (10 MG TOTAL) BY MOUTH EVERY 6 (SIX) HOURS AS NEEDED
     Route: 048
     Dates: start: 20200928, end: 20210726
  16. COMPAZINE [Concomitant]
     Active Substance: PROCHLORPERAZINE MALEATE
     Indication: Vomiting
  17. PANTOPRAZOLE [Concomitant]
     Active Substance: PANTOPRAZOLE
     Dosage: UNK
  18. TESTOSTERONE CYPIONATE [Concomitant]
     Active Substance: TESTOSTERONE CYPIONATE
     Dosage: UNK
  19. CYANOCOBALAMIN [Concomitant]
     Active Substance: CYANOCOBALAMIN
     Dosage: UNK
  20. OXYCODONE [Concomitant]
     Active Substance: OXYCODONE
     Dosage: UNK
  21. RHAMNUS PURSHIANA BARK EXTRACT [Concomitant]
     Active Substance: RHAMNUS PURSHIANA BARK EXTRACT

REACTIONS (13)
  - Neutropenia [Recovered/Resolved]
  - Diverticulitis [Recovered/Resolved]
  - Leukopenia [Recovered/Resolved]
  - Small intestinal obstruction [Unknown]
  - Neutropenic colitis [Unknown]
  - Lymphocyte count decreased [Unknown]
  - Systemic inflammatory response syndrome [Unknown]
  - Lactic acidosis [Recovered/Resolved]
  - Iron deficiency anaemia [Unknown]
  - Liver function test abnormal [Unknown]
  - Hyponatraemia [Unknown]
  - Pyrexia [Unknown]
  - Abdominal pain [Unknown]

NARRATIVE: CASE EVENT DATE: 20201010
